FAERS Safety Report 7600620-7 (Version None)
Quarter: 2011Q3

REPORT INFORMATION
  Report Type: 
  Country: None (occurrence: None)
  Receive Date: 20110711
  Receipt Date: 20110706
  Transmission Date: 20111222
  Serious: Yes (Other)
  Sender: FDA-Public Use
  Company Number: US-PFIZER INC-2011154097

PATIENT

DRUGS (1)
  1. DILANTIN [Suspect]
     Dosage: 100 MG, UNK
     Route: 048

REACTIONS (3)
  - SPEECH DISORDER [None]
  - DYSPHAGIA [None]
  - DIVERTICULUM OESOPHAGEAL [None]
